FAERS Safety Report 11987788 (Version 1)
Quarter: 2016Q1

REPORT INFORMATION
  Report Type: Spontaneous
  Country: US (occurrence: None)
  Receive Date: 20160201
  Receipt Date: 20160201
  Transmission Date: 20160526
  Serious: No
  Sender: FDA-Public Use
  Company Number: None

PATIENT

DRUGS (2)
  1. KADIAN [Suspect]
     Active Substance: MORPHINE SULFATE
     Route: 048
  2. AVINZA [Suspect]
     Active Substance: MORPHINE SULFATE
     Route: 048

REACTIONS (6)
  - Product label confusion [None]
  - Drug dispensing error [None]
  - Contraindicated drug administered [None]
  - Therapeutic response changed [None]
  - Product substitution issue [None]
  - Adverse drug reaction [None]
